FAERS Safety Report 6965928-7 (Version None)
Quarter: 2010Q3

REPORT INFORMATION
  Report Type: 
  Country: None (occurrence: None)
  Receive Date: 20100903
  Receipt Date: 20100903
  Transmission Date: 20110219
  Serious: Yes (Hospitalization)
  Sender: FDA-Public Use
  Company Number: SE-MPIJNJ-2010-02496

PATIENT

DRUGS (4)
  1. VELCADE [Suspect]
     Indication: MULTIPLE MYELOMA
  2. OXYCODONE [Concomitant]
     Dosage: 10 MG, UNK
  3. NORMORIX [Concomitant]
     Dosage: 55 MG, UNK
  4. ASPIRIN [Concomitant]
     Dosage: 160 MG, UNK

REACTIONS (4)
  - DEPRESSION [None]
  - FATIGUE [None]
  - HERPES ZOSTER [None]
  - THROMBOCYTOPENIA [None]
